FAERS Safety Report 9330569 (Version 1)
Quarter: 2013Q2

REPORT INFORMATION
  Report Type: Spontaneous
  Country: US (occurrence: None)
  Receive Date: 20130604
  Receipt Date: 20130604
  Transmission Date: 20140414
  Serious: No
  Sender: FDA-Public Use
  Company Number: None

PATIENT
  Age: 75 Year
  Sex: Female

DRUGS (1)
  1. CARBOPLATIN [Suspect]
     Route: 042
     Dates: start: 20121203, end: 20130530

REACTIONS (5)
  - Cough [None]
  - Choking [None]
  - Blood pressure increased [None]
  - Heart rate increased [None]
  - Oxygen saturation decreased [None]
